FAERS Safety Report 6502623-2 (Version None)
Quarter: 2009Q4

REPORT INFORMATION
  Report Type: 
  Country: None (occurrence: None)
  Receive Date: 20091127
  Receipt Date: 20090122
  Transmission Date: 20100525
  Serious: Yes (Other)
  Sender: FDA-Public Use
  Company Number: WAES 0901USA03331

PATIENT
  Age: 89 Year
  Sex: Female
  Weight: 58.0604 kg

DRUGS (9)
  1. FOSAMAX [Suspect]
     Indication: OSTEOPOROSIS
     Dosage: 60 MG/PO
     Route: 048
     Dates: start: 19900101, end: 20080821
  2. ARICEPT [Concomitant]
  3. DETROL LA [Concomitant]
  4. DIOVAN [Concomitant]
  5. NAMENDA [Concomitant]
  6. NORVASC [Concomitant]
  7. CALCIUM [Concomitant]
  8. IRON [Concomitant]
  9. VITAMINS [Concomitant]

REACTIONS (3)
  - CATARACT [None]
  - OSTEONECROSIS [None]
  - SQUAMOUS CELL CARCINOMA [None]
